FAERS Safety Report 22591487 (Version 1)
Quarter: 2023Q2

REPORT INFORMATION
  Report Type: Spontaneous
  Country: US (occurrence: US)
  Receive Date: 20230612
  Receipt Date: 20230612
  Transmission Date: 20230721
  Serious: No
  Sender: FDA-Public Use
  Company Number: US-RIGEL PHARMACEUTICALS, INC.-2022FOS000497

PATIENT
  Age: 75 Year
  Sex: Female

DRUGS (1)
  1. TAVALISSE [Suspect]
     Active Substance: FOSTAMATINIB
     Indication: Immune thrombocytopenia
     Dosage: 150 MG EVERY MORNING, AND 100 MG EVERY EVENING, MG
     Route: 048
     Dates: start: 20201221

REACTIONS (3)
  - Diplopia [Unknown]
  - Decreased activity [Unknown]
  - Platelet count [Unknown]

NARRATIVE: CASE EVENT DATE: 20211101
